FAERS Safety Report 6116424-0 (Version None)
Quarter: 2009Q1

REPORT INFORMATION
  Report Type: 
  Country: None (occurrence: None)
  Receive Date: 20090314
  Receipt Date: 20081219
  Transmission Date: 20090719
  Serious: Yes (Hospitalization)
  Sender: FDA-Public Use
  Company Number: US-ABBOTT-08P-163-0494078-00

PATIENT
  Sex: Female
  Weight: 52.21 kg

DRUGS (2)
  1. HUMIRA [Suspect]
     Indication: CROHN'S DISEASE
     Route: 058
     Dates: start: 20081109, end: 20081109
  2. HUMIRA [Suspect]
     Route: 058

REACTIONS (3)
  - CENTRAL LINE INFECTION [None]
  - CHILLS [None]
  - MICROCOCCUS INFECTION [None]
